FAERS Safety Report 6321882-2 (Version None)
Quarter: 2009Q3

REPORT INFORMATION
  Report Type: 
  Country: None (occurrence: None)
  Receive Date: 20090824
  Receipt Date: 20090609
  Transmission Date: 20100115
  Serious: No
  Sender: FDA-Public Use
  Company Number: US-BAYER-200923909NA

PATIENT
  Age: 40 Year
  Sex: Female

DRUGS (1)
  1. YAZ [Suspect]
     Indication: FLUID RETENTION
     Route: 048
     Dates: start: 20090101

REACTIONS (11)
  - ABDOMINAL DISTENSION [None]
  - ABDOMINAL PAIN [None]
  - ACNE [None]
  - DEPRESSED MOOD [None]
  - FLUID RETENTION [None]
  - HYPOMENORRHOEA [None]
  - IRRITABILITY [None]
  - MENSTRUATION DELAYED [None]
  - OFF LABEL USE [None]
  - VAGINAL HAEMORRHAGE [None]
  - WEIGHT INCREASED [None]
